FAERS Safety Report 6430151-1 (Version None)
Quarter: 2009Q4

REPORT INFORMATION
  Report Type: 
  Country: None (occurrence: None)
  Receive Date: 20091104
  Receipt Date: 20091104
  Transmission Date: 20100525
  Serious: Yes (Life-Threatening, Hospitalization)
  Sender: FDA-Public Use
  Company Number: None

PATIENT
  Age: 85 Year
  Sex: Female
  Weight: 181.7 kg

DRUGS (15)
  1. NITROFURANTOIN [Suspect]
     Indication: PROPHYLAXIS
     Dosage: 100 MG QDAY PO
     Route: 048
  2. NITROFURANTOIN [Suspect]
     Indication: URINARY TRACT INFECTION
     Dosage: 100 MG QDAY PO
     Route: 048
  3. ALLOPURINOL [Concomitant]
  4. CARBIDOPA-LEVODOPA [Concomitant]
  5. CETIRIZINE [Concomitant]
  6. FUROSEMIDE [Concomitant]
  7. GABAPENTIN [Concomitant]
  8. GLYBURIDE [Concomitant]
  9. VICODIN [Concomitant]
  10. IMIQUIMOD [Concomitant]
  11. MIRTAZAPINE [Concomitant]
  12. MUPIROCIN [Concomitant]
  13. OMEPRAZOLE [Concomitant]
  14. OXAZEPAM [Concomitant]
  15. TOLTERADINE [Concomitant]

REACTIONS (7)
  - COUGH [None]
  - DRUG INEFFECTIVE [None]
  - DYSPNOEA [None]
  - LUNG DISORDER [None]
  - OXYGEN SATURATION DECREASED [None]
  - PNEUMONIA [None]
  - PULMONARY FIBROSIS [None]
